FAERS Safety Report 6621764-2 (Version None)
Quarter: 2010Q1

REPORT INFORMATION
  Report Type: 
  Country: None (occurrence: None)
  Receive Date: 20100223
  Receipt Date: 20091213
  Transmission Date: 20100710
  Serious: No
  Sender: FDA-Public Use
  Company Number: 003052

PATIENT
  Sex: Male

DRUGS (5)
  1. CIMZIA [Suspect]
     Indication: CROHN'S DISEASE
     Dosage: SUBCUTANEOUS
     Route: 058
     Dates: start: 20091116
  2. MESALAMINE [Concomitant]
  3. NEXIUM [Concomitant]
  4. EFFEXOR XR [Concomitant]
  5. CODEINE SULFATE [Concomitant]

REACTIONS (3)
  - ENDODONTIC PROCEDURE [None]
  - POLLAKIURIA [None]
  - TOOTHACHE [None]
